FAERS Safety Report 12973213 (Version 2)
Quarter: 2016Q4

REPORT INFORMATION
  Report Type: Spontaneous
  Country: US (occurrence: US)
  Receive Date: 20161124
  Receipt Date: 20161124
  Transmission Date: 20170207
  Serious: Yes (Other)
  Sender: FDA-Public Use
  Company Number: ALCN2010US004379

PATIENT
  Age: 9 Year
  Sex: Male

DRUGS (9)
  1. DIFLUPREDNATE [Suspect]
     Active Substance: DIFLUPREDNATE
     Dosage: 1 DF, QID, TAPPERED TO BID OVER 2 MONTHS
     Route: 047
  2. DIFLUPREDNATE [Suspect]
     Active Substance: DIFLUPREDNATE
     Dosage: 1 DF, BID
     Route: 047
  3. DIFLUPREDNATE [Suspect]
     Active Substance: DIFLUPREDNATE
     Dosage: 1 DF, Q2H
     Route: 047
  4. DIFLUPREDNATE [Suspect]
     Active Substance: DIFLUPREDNATE
     Dosage: 1 DF, BID
     Route: 047
  5. PREDNISOLONE ACETATE. [Suspect]
     Active Substance: PREDNISOLONE ACETATE
     Indication: UVEITIS
     Dosage: 1 DF, QID, AND THEN TAPPERED OFF
     Route: 047
  6. DIFLUPREDNATE [Suspect]
     Active Substance: DIFLUPREDNATE
     Indication: UVEITIS
     Dosage: 1 DF, QID
     Route: 047
  7. DIFLUPREDNATE [Suspect]
     Active Substance: DIFLUPREDNATE
     Dosage: 1 DF, QD
     Route: 047
  8. TIMOLOL. [Suspect]
     Active Substance: TIMOLOL
     Indication: INTRAOCULAR PRESSURE INCREASED
     Dosage: 1 DF, QD
     Route: 047
  9. PREDNISONE. [Concomitant]
     Active Substance: PREDNISONE
     Indication: UVEITIS
     Dosage: 1 DF, BID
     Route: 048

REACTIONS (9)
  - Insomnia [Unknown]
  - Drug effect decreased [Unknown]
  - Weight increased [Unknown]
  - Off label use [Unknown]
  - Product use issue [Unknown]
  - Cataract subcapsular [Unknown]
  - Intraocular pressure increased [Recovered/Resolved]
  - Ciliary body disorder [Unknown]
  - Visual acuity reduced [Unknown]
